FAERS Safety Report 15759145 (Version 4)
Quarter: 2019Q1

REPORT INFORMATION
  Report Type: Report from Study
  Country: US (occurrence: US)
  Receive Date: 20181226
  Receipt Date: 20190312
  Transmission Date: 20190417
  Serious: No
  Sender: FDA-Public Use
  Company Number: PHEH2018US054125

PATIENT
  Sex: Male
  Weight: 136.8 kg

DRUGS (2)
  1. METRONIDAZOLE. [Suspect]
     Active Substance: METRONIDAZOLE
     Indication: PRODUCT USED FOR UNKNOWN INDICATION
     Route: 065
  2. COSENTYX [Suspect]
     Active Substance: SECUKINUMAB
     Indication: DYSHIDROTIC ECZEMA
     Dosage: 300 MG, QMO
     Route: 058
     Dates: start: 201805

REACTIONS (2)
  - Product use in unapproved indication [Unknown]
  - Hangover [Unknown]
